FAERS Safety Report 16384222 (Version 1)
Quarter: 2019Q2

REPORT INFORMATION
  Report Type: Spontaneous
  Country: ZA (occurrence: ZA)
  Receive Date: 20190603
  Receipt Date: 20190603
  Transmission Date: 20190711
  Serious: Yes (Death, Hospitalization, Other)
  Sender: FDA-Public Use
  Company Number: ZA-JNJFOC-20190530502

PATIENT
  Age: 36 Year
  Sex: Female

DRUGS (18)
  1. ISONIAZID. [Suspect]
     Active Substance: ISONIAZID
     Indication: TUBERCULOSIS
     Route: 048
     Dates: start: 201806
  2. TENOFOVIR [Concomitant]
     Active Substance: TENOFOVIR
     Route: 048
  3. RITONAVIR. [Concomitant]
     Active Substance: RITONAVIR
     Route: 048
  4. TERIZIDONE [Concomitant]
     Active Substance: TERIZIDONE
     Route: 048
  5. ATAZANAVIR. [Concomitant]
     Active Substance: ATAZANAVIR
     Route: 048
  6. CLOFAZIMINE [Suspect]
     Active Substance: CLOFAZIMINE
     Indication: TUBERCULOSIS
     Route: 048
     Dates: start: 201806
  7. LEVOFLOXACIN. [Suspect]
     Active Substance: LEVOFLOXACIN
     Indication: TUBERCULOSIS
     Route: 048
     Dates: start: 201806
  8. BACTRIM [Concomitant]
     Active Substance: SULFAMETHOXAZOLE\TRIMETHOPRIM
     Route: 048
  9. LINEZOLID. [Suspect]
     Active Substance: LINEZOLID
     Indication: TUBERCULOSIS
     Route: 048
     Dates: start: 201806
  10. DELAMANID [Suspect]
     Active Substance: DELAMANID
     Indication: TUBERCULOSIS
     Route: 048
     Dates: start: 201806
  11. TEDIZOLID [Suspect]
     Active Substance: TEDIZOLID
     Indication: TUBERCULOSIS
     Route: 065
     Dates: start: 201806
  12. PARA-AMINOSALICYLIC ACID [Suspect]
     Active Substance: AMINOSALICYLIC ACID
     Indication: TUBERCULOSIS
     Route: 065
     Dates: start: 201810
  13. MAXOLON [Concomitant]
     Active Substance: METOCLOPRAMIDE HYDROCHLORIDE
     Route: 048
  14. SIRTURO [Suspect]
     Active Substance: BEDAQUILINE FUMARATE
     Indication: TUBERCULOSIS
     Route: 048
     Dates: start: 201806
  15. PYRIDOXINE [Concomitant]
     Active Substance: PYRIDOXINE
     Dosage: FLY
     Route: 048
  16. PYRAZINAMIDE. [Suspect]
     Active Substance: PYRAZINAMIDE
     Indication: TUBERCULOSIS
     Route: 048
     Dates: start: 201806
  17. LOPERAMIDE [Concomitant]
     Active Substance: LOPERAMIDE
     Route: 048
  18. EMTRICITABINE [Concomitant]
     Active Substance: EMTRICITABINE
     Route: 048

REACTIONS (14)
  - Diarrhoea [Not Recovered/Not Resolved]
  - Night sweats [Unknown]
  - Intentional product use issue [Unknown]
  - Rash generalised [Unknown]
  - Blood calcium decreased [Unknown]
  - Off label use [Unknown]
  - Hepatic enzyme increased [Unknown]
  - Weight decreased [Unknown]
  - Blood sodium decreased [Unknown]
  - Bone marrow failure [Unknown]
  - Vomiting [Not Recovered/Not Resolved]
  - Dyspnoea [Not Recovered/Not Resolved]
  - Death [Fatal]
  - Dehydration [Unknown]

NARRATIVE: CASE EVENT DATE: 2018
